FAERS Safety Report 6594934-X (Version None)
Quarter: 2010Q1

REPORT INFORMATION
  Report Type: 
  Country: None (occurrence: None)
  Receive Date: 20100218
  Receipt Date: 20100218
  Transmission Date: 20100710
  Serious: Yes (Life-Threatening, Hospitalization)
  Sender: FDA-Public Use
  Company Number: None

PATIENT
  Age: 61 Year
  Sex: Male
  Weight: 106 kg

DRUGS (3)
  1. METOCLOPRAMIDE HYDROCHLORIDE [Suspect]
     Indication: NAUSEA
     Dosage: 10 MG PRN IV
     Route: 042
     Dates: start: 20090203, end: 20090205
  2. METOCLOPRAMIDE HYDROCHLORIDE [Suspect]
     Indication: VOMITING
     Dosage: 10 MG PRN IV
     Route: 042
     Dates: start: 20090203, end: 20090205
  3. FLUOXETINE [Suspect]
     Indication: DEPRESSION
     Dosage: 40 MG EVERY DAY PO
     Route: 048
     Dates: start: 20051021, end: 20090206

REACTIONS (11)
  - BLOOD CREATINE PHOSPHOKINASE INCREASED [None]
  - CONFUSIONAL STATE [None]
  - HEPATIC ENZYME INCREASED [None]
  - HYPERTENSION [None]
  - MUSCLE RIGIDITY [None]
  - NEUROLEPTIC MALIGNANT SYNDROME [None]
  - PYREXIA [None]
  - RENAL FAILURE ACUTE [None]
  - RESTLESSNESS [None]
  - TACHYCARDIA [None]
  - TREMOR [None]
